FAERS Safety Report 7671114-8 (Version None)
Quarter: 2011Q3

REPORT INFORMATION
  Report Type: 
  Country: None (occurrence: None)
  Receive Date: 20110809
  Receipt Date: 20110729
  Transmission Date: 20111222
  Serious: Yes (Other)
  Sender: FDA-Public Use
  Company Number: CA-PURDUE-CAN-2011-0002143

PATIENT
  Age: 48 Year
  Sex: Male

DRUGS (2)
  1. ALCOHOL [Suspect]
     Indication: PRODUCT USED FOR UNKNOWN INDICATION
  2. MORPHINE SULFATE [Suspect]
     Indication: PAIN

REACTIONS (3)
  - DRUG DEPENDENCE [None]
  - SUBSTANCE ABUSE [None]
  - AGGRESSION [None]
